FAERS Safety Report 9870983 (Version 1)
Quarter: 2014Q1

REPORT INFORMATION
  Report Type: Spontaneous
  Country: US (occurrence: None)
  Receive Date: 20140203
  Receipt Date: 20140203
  Transmission Date: 20141002
  Serious: Yes (Hospitalization)
  Sender: FDA-Public Use
  Company Number: 2014AP000846

PATIENT
  Age: 65 Year
  Sex: Male

DRUGS (3)
  1. LITHIUM CARBONATE CAPSULES [Suspect]
     Indication: BIPOLAR I DISORDER
     Dosage: ; UNK; UNK
  2. OLANZAPINE/FLUOXETINE [SYMBYAX] [Concomitant]
  3. OLANZAPINE/FLUOXETINE [SYMBYAX] [Concomitant]

REACTIONS (14)
  - Toxicity to various agents [None]
  - Multiple system atrophy [None]
  - Condition aggravated [None]
  - Ataxia [None]
  - Asthenia [None]
  - Dizziness [None]
  - Vomiting [None]
  - Weight decreased [None]
  - Tremor [None]
  - Aphasia [None]
  - Gait disturbance [None]
  - Ataxia [None]
  - Small fibre neuropathy [None]
  - Parkinson^s disease [None]
